FAERS Safety Report 5516247-7 (Version None)
Quarter: 2007Q4

REPORT INFORMATION
  Report Type: 
  Country: None (occurrence: None)
  Receive Date: 20071114
  Receipt Date: 20070112
  Transmission Date: 20080405
  Serious: No
  Sender: FDA-Public Use
  Company Number: A0635312A

PATIENT
  Age: 44 Year
  Sex: Male

DRUGS (2)
  1. COMMIT [Suspect]
     Dates: start: 20070106, end: 20070106
  2. COMMIT [Suspect]
     Dates: start: 20070108

REACTIONS (1)
  - DYSGEUSIA [None]
